FAERS Safety Report 9757479 (Version 2)
Quarter: 2013Q4

REPORT INFORMATION
  Report Type: Report from Study
  Country: UY (occurrence: UY)
  Receive Date: 20131215
  Receipt Date: 20131215
  Transmission Date: 20140711
  Serious: Yes (Hospitalization)
  Sender: FDA-Public Use
  Company Number: UY-ROCHE-1284918

PATIENT
  Sex: Female

DRUGS (3)
  1. XELODA [Suspect]
     Indication: COLORECTAL CANCER
     Route: 048
     Dates: start: 20130521, end: 201309
  2. XELODA [Suspect]
     Indication: PANCREATIC CARCINOMA METASTATIC
  3. IRINOTECAN [Concomitant]

REACTIONS (2)
  - Pleural effusion [Recovering/Resolving]
  - Neoplasm progression [Unknown]
